FAERS Safety Report 15073300 (Version 2)
Quarter: 2018Q3

REPORT INFORMATION
  Report Type: Spontaneous
  Country: US (occurrence: US)
  Receive Date: 20180627
  Receipt Date: 20180820
  Transmission Date: 20181010
  Serious: Yes (Other)
  Sender: FDA-Public Use
  Company Number: US-ROCHE-2145033

PATIENT
  Sex: Female

DRUGS (1)
  1. RITUXAN [Suspect]
     Active Substance: RITUXIMAB
     Indication: SICKLE CELL ANAEMIA
     Dosage: ONGOING: UNKNOWN
     Route: 065

REACTIONS (3)
  - Intentional product use issue [Unknown]
  - Seizure [Unknown]
  - Off label use [Unknown]
